FAERS Safety Report 10191923 (Version 1)
Quarter: 2014Q2

REPORT INFORMATION
  Report Type: Spontaneous
  Country: DE (occurrence: DE)
  Receive Date: 20140523
  Receipt Date: 20140523
  Transmission Date: 20141212
  Serious: Yes (Other)
  Sender: FDA-Public Use
  Company Number: DE-GLAXOSMITHKLINE-D0083747A

PATIENT
  Sex: Male
  Weight: 78 kg

DRUGS (7)
  1. RELVAR ELLIPTA [Suspect]
     Indication: INTERSTITIAL LUNG DISEASE
     Dosage: 206UG PER DAY
     Route: 055
     Dates: start: 20140120, end: 20140205
  2. RELVAR ELLIPTA [Suspect]
     Indication: INTERSTITIAL LUNG DISEASE
     Dosage: 114UG PER DAY
     Route: 055
     Dates: start: 20140221, end: 20140425
  3. ASS [Concomitant]
     Indication: CORONARY ARTERY DISEASE
     Dosage: 100MG PER DAY
     Route: 048
  4. ATORVASTATIN [Concomitant]
     Indication: CORONARY ARTERY DISEASE
     Dosage: 40MG PER DAY
     Route: 048
  5. EXFORGE [Concomitant]
     Indication: HYPERTENSION
     Dosage: 165MG PER DAY
     Route: 048
  6. METOPROLOL SUCCINAT [Concomitant]
     Indication: CORONARY ARTERY DISEASE
     Dosage: 47.5MG PER DAY
     Route: 048
  7. PROCORALAN [Concomitant]
     Indication: CORONARY ARTERY DISEASE
     Dosage: 10MG PER DAY
     Route: 048

REACTIONS (6)
  - Respiratory tract infection [Recovered/Resolved]
  - Bronchitis [Recovered/Resolved]
  - Dysphonia [Recovered/Resolved]
  - Medication residue present [Recovered/Resolved]
  - Oropharyngeal pain [Recovered/Resolved]
  - Larynx irritation [Recovered/Resolved]
